FAERS Safety Report 4917411-8 (Version None)
Quarter: 2006Q1

REPORT INFORMATION
  Report Type: 
  Country: None (occurrence: None)
  Receive Date: 20060221
  Receipt Date: 20050606
  Transmission Date: 20060701
  Serious: Yes (Hospitalization)
  Sender: FDA-Public Use
  Company Number: US-MERCK-0506USA00931

PATIENT
  Age: 90 Year
  Sex: Female

DRUGS (5)
  1. VIOXX [Suspect]
     Indication: ARTHRITIS
     Route: 048
     Dates: start: 20030101, end: 20041230
  2. VIOXX [Suspect]
     Route: 048
     Dates: start: 20031211
  3. ARICEPT [Concomitant]
     Route: 065
  4. SUCRALFIN [Concomitant]
     Route: 065
  5. [THERAPY UNSPECIFIED] [Concomitant]
     Route: 065

REACTIONS (5)
  - DEHYDRATION [None]
  - DEMENTIA [None]
  - HALLUCINATION [None]
  - MYOCARDIAL INFARCTION [None]
  - SYNCOPE [None]
